FAERS Safety Report 17168573 (Version 1)
Quarter: 2019Q4

REPORT INFORMATION
  Report Type: Spontaneous
  Country: US (occurrence: US)
  Receive Date: 20191125
  Receipt Date: 20191125
  Transmission Date: 20200122
  Serious: Yes (Other)
  Sender: FDA-Public Use
  Company Number: None

PATIENT
  Age: 9 Year
  Sex: Male
  Weight: 31.3 kg

DRUGS (1)
  1. METHYLPHENIDATE 18MG [Suspect]
     Active Substance: METHYLPHENIDATE
     Indication: LETHARGY
     Route: 048
     Dates: start: 20191114, end: 20191119

REACTIONS (4)
  - Decreased appetite [None]
  - Depression [None]
  - Product substitution issue [None]
  - Lethargy [None]

NARRATIVE: CASE EVENT DATE: 20191119
